FAERS Safety Report 6587691-4 (Version None)
Quarter: 2010Q1

REPORT INFORMATION
  Report Type: 
  Country: None (occurrence: None)
  Receive Date: 20100217
  Receipt Date: 20100217
  Transmission Date: 20100710
  Serious: Yes (Disabling)
  Sender: FDA-Public Use
  Company Number: None

PATIENT
  Age: 48 Year
  Sex: Female
  Weight: 104.3273 kg

DRUGS (1)
  1. LISINOPRIL [Suspect]
     Indication: HYPERTENSION
     Dosage: ONCE PILL PER DAY PO
     Route: 048
     Dates: start: 20100104, end: 20100213

REACTIONS (3)
  - COUGH [None]
  - FATIGUE [None]
  - PALPITATIONS [None]
